FAERS Safety Report 9149767 (Version 1)
Quarter: 2013Q1

REPORT INFORMATION
  Report Type: Spontaneous
  Country: US (occurrence: US)
  Receive Date: 20130308
  Receipt Date: 20130308
  Transmission Date: 20140127
  Serious: Yes (Life-Threatening, Other)
  Sender: FDA-Public Use
  Company Number: US-PFIZER INC-2013070610

PATIENT
  Sex: Female

DRUGS (1)
  1. ROBITUSSIN COLD + COUGH [Suspect]
     Dosage: UNK

REACTIONS (3)
  - Myocardial infarction [Unknown]
  - Hepatic failure [Unknown]
  - Panic attack [Unknown]
